FAERS Safety Report 20697641 (Version 1)
Quarter: 2022Q2

REPORT INFORMATION
  Report Type: Report from Study
  Country: CA (occurrence: CA)
  Receive Date: 20220411
  Receipt Date: 20220411
  Transmission Date: 20220721
  Serious: Yes (Other)
  Sender: FDA-Public Use
  Company Number: CA-JNJFOC-20210504693

PATIENT
  Age: 16 Year
  Sex: Male
  Weight: 98.8 kg

DRUGS (4)
  1. REMICADE [Suspect]
     Active Substance: INFLIXIMAB
     Indication: Colitis ulcerative
     Dosage: THERAPY START DATE: 08-MAY-2020
     Route: 042
     Dates: start: 20151215, end: 20200508
  2. REMICADE [Suspect]
     Active Substance: INFLIXIMAB
     Dosage: PRESCRIPTION RENEWAL
     Route: 042
     Dates: start: 20211104
  3. REMICADE [Suspect]
     Active Substance: INFLIXIMAB
     Dosage: PATIENT RESUMED INFUSION AND RECEIVED LAST IN DEC-2021.HAVE CHANGED PRESCRIPTION ON 24-MAR-2022
     Route: 042
     Dates: start: 20220324
  4. BENADRYL [Suspect]
     Active Substance: DIPHENHYDRAMINE HYDROCHLORIDE
     Indication: Product used for unknown indication
     Dosage: RECEIVED DOSE ON 06/APR/2022
     Route: 042

REACTIONS (8)
  - Haematochezia [Not Recovered/Not Resolved]
  - Malaise [Unknown]
  - Product dose omission issue [Unknown]
  - Feeling hot [Recovering/Resolving]
  - Treatment noncompliance [Unknown]
  - Diarrhoea [Not Recovered/Not Resolved]
  - Dizziness [Recovered/Resolved]
  - Nausea [Recovered/Resolved]

NARRATIVE: CASE EVENT DATE: 20211001
